FAERS Safety Report 16351737 (Version 1)
Quarter: 2019Q2

REPORT INFORMATION
  Report Type: Spontaneous
  Country: US (occurrence: US)
  Receive Date: 20190524
  Receipt Date: 20190524
  Transmission Date: 20190711
  Serious: No
  Sender: FDA-Public Use
  Company Number: US-ELI_LILLY_AND_COMPANY-US201905010479

PATIENT
  Sex: Female

DRUGS (4)
  1. VICTOZA [Concomitant]
     Active Substance: LIRAGLUTIDE
     Indication: DIABETES MELLITUS
     Dosage: 1.8 MG, DAILY
  2. NOVOLOG [Concomitant]
     Active Substance: INSULIN ASPART
     Indication: LATENT AUTOIMMUNE DIABETES IN ADULTS
     Dosage: UNK UNK, PRN
  3. METFORMIN [Concomitant]
     Active Substance: METFORMIN HYDROCHLORIDE
     Indication: LATENT AUTOIMMUNE DIABETES IN ADULTS
     Dosage: 100 MG, BID
  4. HUMULIN R U-500 [Suspect]
     Active Substance: INSULIN HUMAN
     Indication: LATENT AUTOIMMUNE DIABETES IN ADULTS
     Dosage: 300 U, BID
     Route: 058

REACTIONS (2)
  - Pancreatic disorder [Not Recovered/Not Resolved]
  - Blood glucose increased [Recovering/Resolving]
